FAERS Safety Report 5592940-5 (Version None)
Quarter: 2008Q1

REPORT INFORMATION
  Report Type: 
  Country: None (occurrence: None)
  Receive Date: 20080116
  Receipt Date: 20080103
  Transmission Date: 20080703
  Serious: Yes (Hospitalization)
  Sender: FDA-Public Use
  Company Number: US-AMGEN-KDL250453

PATIENT
  Sex: Male
  Weight: 105.3 kg

DRUGS (12)
  1. PROCRIT [Suspect]
     Indication: RENAL FAILURE CHRONIC
     Route: 065
     Dates: start: 20071010
  2. IRON [Concomitant]
  3. PULMICORT [Concomitant]
  4. SPIRIVA [Concomitant]
  5. LITHIUM CARBONATE [Concomitant]
     Dates: start: 19670101
  6. LEVOTHYROXINE SODIUM [Concomitant]
  7. ALLOPURINOL [Concomitant]
  8. ATENOLOL [Concomitant]
  9. CALCITRIOL [Concomitant]
     Dates: start: 20071001
  10. VYTORIN [Concomitant]
     Dates: start: 20040101
  11. ASPIRIN [Concomitant]
  12. VITAMINS [Concomitant]

REACTIONS (3)
  - ABDOMINAL PAIN UPPER [None]
  - ANAEMIA [None]
  - DIARRHOEA HAEMORRHAGIC [None]
